FAERS Safety Report 10925523 (Version 1)
Quarter: 2015Q1

REPORT INFORMATION
  Report Type: Spontaneous
  Country: US (occurrence: US)
  Receive Date: 20150318
  Receipt Date: 20150318
  Transmission Date: 20150721
  Serious: Yes (Other)
  Sender: FDA-Public Use
  Company Number: US-PFIZER INC-2015092897

PATIENT
  Age: 67 Year
  Sex: Male
  Weight: 122 kg

DRUGS (7)
  1. PEPCID [Concomitant]
     Active Substance: FAMOTIDINE
     Indication: GASTRIC ULCER
     Dosage: 20 MG, 1X/DAY IN MORNING
  2. PEPCID [Concomitant]
     Active Substance: FAMOTIDINE
     Indication: DYSPEPSIA
  3. FUROSEMIDE. [Concomitant]
     Active Substance: FUROSEMIDE
     Indication: DIURETIC THERAPY
     Dosage: 40 MG, 2X/DAY (ONE IN MORNING AND ONE IN AFTERNOON)
  4. VALCYTE [Concomitant]
     Active Substance: VALGANCICLOVIR HYDROCHLORIDE
     Indication: VIRAL INFECTION
     Dosage: 450 MG, 1X/DAY (IN MORNING)
  5. LYRICA [Suspect]
     Active Substance: PREGABALIN
     Indication: NEUROPATHY PERIPHERAL
     Dosage: 75 MG, 2X/DAY
  6. ALLOPURINOL. [Concomitant]
     Active Substance: ALLOPURINOL
     Indication: PROPHYLAXIS
     Dosage: 200 MG, 1X/DAY
  7. DAPSONE. [Concomitant]
     Active Substance: DAPSONE
     Indication: BACTERIAL INFECTION
     Dosage: 100 MG, 1X/DAY

REACTIONS (2)
  - Chronic kidney disease [Unknown]
  - Weight increased [Unknown]

NARRATIVE: CASE EVENT DATE: 20150304
